FAERS Safety Report 7079966 (Version 2)
Quarter: 2014Q1

REPORT INFORMATION
  Report Type: Spontaneous
  Country: US (occurrence: None)
  Receive Date: 20090805
  Receipt Date: 20140224
  Transmission Date: 20141002
  Serious: Yes (Hospitalization)
  Sender: FDA-Public Use
  Company Number: 2009S1005926

PATIENT
  Age: 70 Year
  Sex: Female
  Weight: 61.69 kg

DRUGS (11)
  1. FLEET PHOSPHO-SODA [Suspect]
     Indication: COLONOSCOPY
     Dosage: 90 ML; TOTAL; PO
     Route: 048
     Dates: start: 20081124, end: 20081124
  2. PLAVIX (CLOPIDOGREL BISULFATE) (CLOPIDOGREL BISULFATE) [Concomitant]
  3. DIOVAN (VALSARTAN) [Concomitant]
  4. LIPITOR (ATORVASTATIN CALCIUM) [Concomitant]
  5. ALLOPURINOL (ALLOPURINOL) [Concomitant]
  6. ASPIRIN (ACETYLSALICYLIC ACID) [Concomitant]
  7. CENTRUM [Concomitant]
  8. HYDROCHLOROTHIAZIDE (HYDROCHLOROTHIAZIDE) [Concomitant]
  9. OCUVITE (ASCORBIC ACID, TOCOPHEROL, RETINOL) [Concomitant]
  10. RESTASIS (CICOLSPORIN) [Concomitant]
  11. CIPRO (CIPROFLOXACIN) [Concomitant]

REACTIONS (5)
  - Diarrhoea [None]
  - Renal failure [None]
  - Anaemia [None]
  - Renal failure acute [None]
  - Bladder dysfunction [None]
